FAERS Safety Report 8414068-9 (Version None)
Quarter: 2012Q2

REPORT INFORMATION
  Report Type: 
  Country: None (occurrence: None)
  Receive Date: 20120323
  Receipt Date: 20110216
  Transmission Date: 20120825
  Serious: Yes (Hospitalization)
  Sender: FDA-Public Use
  Company Number: 163-21880-11022103

PATIENT
  Age: 59 Year
  Sex: Male
  Weight: 83.9154 kg

DRUGS (14)
  1. PLAVIX [Concomitant]
  2. ZANTAC [Concomitant]
  3. METFFORMIN HYDROCHLORIDE [Suspect]
     Indication: TYPE 2 DIABETES MELLITUS
     Dosage: 850 MG, X 2 DAILY
  4. ASPIRIN [Concomitant]
  5. CARVEDILOL [Concomitant]
  6. DEXAMETHASONE [Concomitant]
  7. REVLIMID [Suspect]
     Indication: MULTIPLE MYELOMA
     Dosage: 25 MG, DAILY X 21 DAYS, PO
     Route: 048
     Dates: start: 20100701
  8. LIPITOR [Concomitant]
  9. FUROSEMIDE [Concomitant]
  10. STRESS B (COMBEVIT C) [Concomitant]
  11. ZOMETA [Concomitant]
  12. VITAMIN D [Concomitant]
  13. FISH OIL (FISH OIL) [Concomitant]
  14. OMEPRAZOLE [Concomitant]

REACTIONS (2)
  - BLOOD POTASSIUM DECREASED [None]
  - MALAISE [None]
